FAERS Safety Report 13676808 (Version 1)
Quarter: 2017Q2

REPORT INFORMATION
  Report Type: Spontaneous
  Country: US (occurrence: US)
  Receive Date: 20170621
  Receipt Date: 20170621
  Transmission Date: 20170830
  Serious: Yes (Hospitalization)
  Sender: FDA-Public Use
  Company Number: None

PATIENT
  Age: 62 Year
  Sex: Male

DRUGS (21)
  1. HYDRCO/APAP [Concomitant]
  2. LORAZEPAM. [Concomitant]
     Active Substance: LORAZEPAM
  3. VITAMIN D3 [Concomitant]
     Active Substance: CHOLECALCIFEROL
  4. DUOPA [Concomitant]
     Active Substance: CARBIDOPA\LEVODOPA
  5. IRON [Concomitant]
     Active Substance: IRON
  6. LAMICTAL [Concomitant]
     Active Substance: LAMOTRIGINE
  7. LASIX [Concomitant]
     Active Substance: FUROSEMIDE
  8. FLOMAX [Concomitant]
     Active Substance: TAMSULOSIN HYDROCHLORIDE
  9. FOLIC ACID. [Concomitant]
     Active Substance: FOLIC ACID
  10. LISINOPRIL. [Concomitant]
     Active Substance: LISINOPRIL
  11. LEVOTHYROXIN [Concomitant]
     Active Substance: LEVOTHYROXINE
  12. TYLENOL [Concomitant]
     Active Substance: ACETAMINOPHEN
  13. OMEPRAZOLE. [Concomitant]
     Active Substance: OMEPRAZOLE
  14. NORDITROPIN [Suspect]
     Active Substance: SOMATROPIN
     Indication: HYPOPITUITARISM
     Route: 058
     Dates: start: 20170407
  15. COLACE [Concomitant]
     Active Substance: DOCUSATE SODIUM
  16. COREG [Concomitant]
     Active Substance: CARVEDILOL
  17. CYMBALTA [Concomitant]
     Active Substance: DULOXETINE HYDROCHLORIDE
  18. SENNA LAXATIVE [Concomitant]
     Active Substance: SENNOSIDES
  19. ASPIRIN. [Concomitant]
     Active Substance: ASPIRIN
  20. GUAIFENESIN. [Concomitant]
     Active Substance: GUAIFENESIN
  21. MIRALAX [Concomitant]
     Active Substance: POLYETHYLENE GLYCOL 3350

REACTIONS (1)
  - Abnormal behaviour [None]
